FAERS Safety Report 14681223 (Version 1)
Quarter: 2018Q1

REPORT INFORMATION
  Report Type: Spontaneous
  Country: BR (occurrence: BR)
  Receive Date: 20180326
  Receipt Date: 20180326
  Transmission Date: 20180509
  Serious: Yes (Life-Threatening, Hospitalization)
  Sender: FDA-Public Use
  Company Number: BR-SA-2017SA160253

PATIENT
  Sex: Female
  Weight: 3.22 kg

DRUGS (16)
  1. CLEXANE [Suspect]
     Active Substance: ENOXAPARIN SODIUM
     Indication: HYPERCOAGULATION
     Route: 064
  2. CLEXANE [Suspect]
     Active Substance: ENOXAPARIN SODIUM
     Indication: HYPERCOAGULATION
     Route: 064
  3. CLEXANE [Suspect]
     Active Substance: ENOXAPARIN SODIUM
     Indication: HYPERCOAGULATION
     Route: 064
  4. CLEXANE [Suspect]
     Active Substance: ENOXAPARIN SODIUM
     Indication: HYPERCOAGULATION
     Route: 064
  5. CLEXANE [Suspect]
     Active Substance: ENOXAPARIN SODIUM
     Indication: HYPERCOAGULATION
     Route: 064
  6. CLEXANE [Suspect]
     Active Substance: ENOXAPARIN SODIUM
     Indication: HYPERCOAGULATION
     Route: 064
     Dates: start: 20151030
  7. CLEXANE [Suspect]
     Active Substance: ENOXAPARIN SODIUM
     Indication: HYPERCOAGULATION
     Route: 064
  8. CLEXANE [Suspect]
     Active Substance: ENOXAPARIN SODIUM
     Indication: HYPERCOAGULATION
     Route: 064
  9. CLEXANE [Suspect]
     Active Substance: ENOXAPARIN SODIUM
     Indication: HYPERCOAGULATION
     Route: 064
  10. CLEXANE [Suspect]
     Active Substance: ENOXAPARIN SODIUM
     Indication: HYPERCOAGULATION
     Route: 064
  11. CLEXANE [Suspect]
     Active Substance: ENOXAPARIN SODIUM
     Indication: HYPERCOAGULATION
     Route: 064
  12. CLEXANE [Suspect]
     Active Substance: ENOXAPARIN SODIUM
     Indication: HYPERCOAGULATION
     Route: 064
  13. CLEXANE [Suspect]
     Active Substance: ENOXAPARIN SODIUM
     Indication: HYPERCOAGULATION
     Route: 064
  14. CLEXANE [Suspect]
     Active Substance: ENOXAPARIN SODIUM
     Indication: HYPERCOAGULATION
     Route: 064
  15. CLEXANE [Suspect]
     Active Substance: ENOXAPARIN SODIUM
     Indication: HYPERCOAGULATION
     Route: 064
     Dates: start: 20151120, end: 20170604
  16. AAS [Suspect]
     Active Substance: ASPIRIN
     Route: 064
     Dates: start: 20151120, end: 20170604

REACTIONS (9)
  - Cardiac disorder [Recovered/Resolved with Sequelae]
  - Hyporesponsive to stimuli [Recovered/Resolved with Sequelae]
  - Brain herniation [Recovered/Resolved with Sequelae]
  - Cerebellar ataxia [Recovered/Resolved with Sequelae]
  - Foetal exposure during pregnancy [Unknown]
  - Haemorrhage intracranial [Recovered/Resolved with Sequelae]
  - Decreased activity [Recovered/Resolved with Sequelae]
  - Intracranial pressure increased [Recovered/Resolved with Sequelae]
  - Motor developmental delay [Recovered/Resolved with Sequelae]

NARRATIVE: CASE EVENT DATE: 20160620
